FAERS Safety Report 9175254 (Version 1)
Quarter: 2013Q1

REPORT INFORMATION
  Report Type: Spontaneous
  Country: GB (occurrence: GB)
  Receive Date: 20130320
  Receipt Date: 20130320
  Transmission Date: 20140127
  Serious: Yes (Death)
  Sender: FDA-Public Use
  Company Number: GB-PFIZER INC-2013087368

PATIENT
  Age: 84 Year
  Sex: Male

DRUGS (1)
  1. ZYVOX [Suspect]

REACTIONS (1)
  - Death [Fatal]
